FAERS Safety Report 5488761-4 (Version None)
Quarter: 2007Q4

REPORT INFORMATION
  Report Type: 
  Country: None (occurrence: None)
  Receive Date: 20071017
  Receipt Date: 20071005
  Transmission Date: 20080405
  Serious: Yes (Other)
  Sender: FDA-Public Use
  Company Number: US-PFIZER INC-2007068146

PATIENT
  Sex: Female

DRUGS (5)
  1. LYRICA [Suspect]
     Indication: PAIN
     Route: 048
  2. XANAX [Concomitant]
  3. LEXAPRO [Concomitant]
  4. CLONIDINE [Concomitant]
  5. SKELAXIN [Concomitant]

REACTIONS (5)
  - DIZZINESS [None]
  - DRUG INEFFECTIVE [None]
  - MEMORY IMPAIRMENT [None]
  - PSYCHOTIC DISORDER [None]
  - SYNCOPE [None]
